FAERS Safety Report 24538612 (Version 2)
Quarter: 2024Q4

REPORT INFORMATION
  Report Type: Report from Study
  Country: US (occurrence: US)
  Receive Date: 20241023
  Receipt Date: 20241211
  Transmission Date: 20250115
  Serious: Yes (Hospitalization)
  Sender: TAIHO ONCOLOGY INC
  Company Number: US-TAIHOP-2024-008653

PATIENT
  Age: 73 Year
  Sex: Male

DRUGS (1)
  1. LONSURF [Suspect]
     Active Substance: TIPIRACIL HYDROCHLORIDE\TRIFLURIDINE
     Indication: Colon cancer
     Dosage: DOSE, FREQUENCY, STRENGTH AND CYCLE WERE UNKNOWN
     Route: 048
     Dates: start: 20240709

REACTIONS (5)
  - Abdominal pain upper [Unknown]
  - Malaise [Unknown]
  - Feeling abnormal [Unknown]
  - Cytopenia [Unknown]
  - Inappropriate schedule of product administration [Unknown]

NARRATIVE: CASE EVENT DATE: 20241001
